FAERS Safety Report 13551552 (Version 1)
Quarter: 2017Q2

REPORT INFORMATION
  Report Type: Spontaneous
  Country: US (occurrence: US)
  Receive Date: 20170516
  Receipt Date: 20170516
  Transmission Date: 20170830
  Serious: No
  Sender: FDA-Public Use
  Company Number: US-009507513-1704USA015199

PATIENT
  Age: 91 Year
  Sex: Female

DRUGS (2)
  1. STERILE DILUENT [Suspect]
     Active Substance: WATER
     Indication: PROPHYLAXIS
  2. ZOSTAVAX [Suspect]
     Active Substance: VARICELLA-ZOSTER VIRUS STRAIN OKA/MERCK LIVE ANTIGEN
     Indication: PROPHYLAXIS

REACTIONS (2)
  - Post herpetic neuralgia [Unknown]
  - Herpes zoster [Unknown]
